FAERS Safety Report 8185968-2 (Version None)
Quarter: 2012Q1

REPORT INFORMATION
  Report Type: 
  Country: None (occurrence: None)
  Receive Date: 20120305
  Receipt Date: 20120221
  Transmission Date: 20120608
  Serious: Yes (Hospitalization)
  Sender: FDA-Public Use
  Company Number: RO-MYLANLABS-2012S1003998

PATIENT
  Age: 18 Year
  Sex: Female

DRUGS (1)
  1. BACLOFEN [Suspect]
     Indication: ACCIDENTAL OVERDOSE
     Dosage: 12 TABLETS; ABOUT 120MG TOTAL

REACTIONS (10)
  - MIOSIS [None]
  - ACCIDENTAL OVERDOSE [None]
  - COMA [None]
  - SUPRAVENTRICULAR TACHYCARDIA [None]
  - HYPOREFLEXIA [None]
  - LEUKOCYTOSIS [None]
  - HYPOTONIA [None]
  - RESPIRATORY ARREST [None]
  - HYPERTENSION [None]
  - HYPERGLYCAEMIA [None]
